FAERS Safety Report 19872088 (Version 1)
Quarter: 2021Q3

REPORT INFORMATION
  Report Type: Spontaneous
  Country: US (occurrence: US)
  Receive Date: 20210923
  Receipt Date: 20210923
  Transmission Date: 20211014
  Serious: Yes (Hospitalization)
  Sender: FDA-Public Use
  Company Number: None

PATIENT
  Age: 19 Year
  Sex: Female

DRUGS (4)
  1. BENLYSTA [Concomitant]
     Active Substance: BELIMUMAB
     Dates: start: 20210915
  2. HYDROYCHLOR [Concomitant]
     Dates: start: 20210620
  3. BENLYSTA [Suspect]
     Active Substance: BELIMUMAB
     Indication: SYSTEMIC LUPUS ERYTHEMATOSUS
     Dosage: ?          OTHER FREQUENCY:QOW;?
     Route: 058
     Dates: start: 20210518
  4. HYDROXYCHLOR [Concomitant]
     Active Substance: HYDROXYCHLOROQUINE
     Dates: start: 20210322

REACTIONS (2)
  - Therapy interrupted [None]
  - Systemic lupus erythematosus [None]

NARRATIVE: CASE EVENT DATE: 20210921
